FAERS Safety Report 4332323-9 (Version None)
Quarter: 2004Q2

REPORT INFORMATION
  Report Type: 
  Country: None (occurrence: None)
  Receive Date: 20040401
  Receipt Date: 20040309
  Transmission Date: 20050107
  Serious: No
  Sender: FDA-Public Use
  Company Number: 7625

PATIENT
  Age: 52 Year
  Sex: Female

DRUGS (5)
  1. LEUCOVORIN CALCIUM [Suspect]
     Indication: COLON CANCER
     Dosage: 75 MG, PO
     Route: 048
     Dates: start: 20030615
  2. UFT [Suspect]
     Indication: COLON CANCER
     Dosage: 500 MG, PO
     Route: 048
     Dates: start: 20030615
  3. MECOBALAMIN [Concomitant]
  4. CLOTIAZEPAM [Concomitant]
  5. SODIUM GUALENATE [Concomitant]

REACTIONS (3)
  - ALANINE AMINOTRANSFERASE INCREASED [None]
  - ASPARTATE AMINOTRANSFERASE INCREASED [None]
  - MALAISE [None]
